FAERS Safety Report 4975649-8 (Version None)
Quarter: 2006Q2

REPORT INFORMATION
  Report Type: 
  Country: None (occurrence: None)
  Receive Date: 20060411
  Receipt Date: 20060324
  Transmission Date: 20061013
  Serious: Yes (Hospitalization)
  Sender: FDA-Public Use
  Company Number: US200603006421

PATIENT
  Age: 61 Year
  Sex: Female

DRUGS (1)
  1. HUMULIN 70/30 [Suspect]
     Indication: DIABETES MELLITUS
     Dosage: 40 U, 2/D, SUBCUTANEOUS
     Route: 058
     Dates: start: 20051101

REACTIONS (2)
  - FOOT FRACTURE [None]
  - PHARMACEUTICAL PRODUCT COMPLAINT [None]
